FAERS Safety Report 6677999-6 (Version None)
Quarter: 2010Q2

REPORT INFORMATION
  Report Type: 
  Country: None (occurrence: None)
  Receive Date: 20100412
  Receipt Date: 20100310
  Transmission Date: 20101027
  Serious: No
  Sender: FDA-Public Use
  Company Number: US-BAYER-201013056BCC

PATIENT
  Age: 74 Year
  Sex: Male
  Weight: 113 kg

DRUGS (7)
  1. ALEVE (CAPLET) [Suspect]
     Indication: CHEST PAIN
     Dosage: TOTAL DAILY DOSE: 440 MG  UNIT DOSE: 220 MG
     Route: 048
     Dates: start: 20100310
  2. NOVOLOG [Concomitant]
     Route: 065
  3. LANTUS [Concomitant]
     Route: 065
  4. METOPROLOL TARTRATE [Concomitant]
     Route: 065
  5. SIMVASTATIN [Concomitant]
     Route: 065
  6. TRAZODONE [Concomitant]
     Route: 065
  7. ASPIRIN [Concomitant]
     Route: 065

REACTIONS (1)
  - PRURITUS [None]
